FAERS Safety Report 10611670 (Version 4)
Quarter: 2015Q1

REPORT INFORMATION
  Report Type: Spontaneous
  Country: IT (occurrence: IT)
  Receive Date: 20141126
  Receipt Date: 20150327
  Transmission Date: 20150720
  Serious: Yes (Other)
  Sender: FDA-Public Use
  Company Number: IT-ALLERGAN-1424257US

PATIENT
  Age: 51 Year
  Sex: Female

DRUGS (4)
  1. VISTABEX [Suspect]
     Active Substance: BOTULINUM TOXIN TYPE A
     Indication: SKIN WRINKLING
  2. VISTABEX [Suspect]
     Active Substance: BOTULINUM TOXIN TYPE A
     Indication: SKIN WRINKLING
     Dosage: 25 UNITS, SINGLE
     Route: 023
     Dates: start: 20141114, end: 20141114
  3. VISTABEX [Suspect]
     Active Substance: BOTULINUM TOXIN TYPE A
     Indication: SKIN WRINKLING
  4. AURIDERM XO [Concomitant]

REACTIONS (12)
  - Papule [Recovering/Resolving]
  - Visual acuity reduced [Recovering/Resolving]
  - Oedema [Recovering/Resolving]
  - Visual field defect [Recovering/Resolving]
  - Erythema [Recovering/Resolving]
  - Vision blurred [Recovering/Resolving]
  - Dry skin [Recovering/Resolving]
  - Eye irritation [Recovering/Resolving]
  - Skin exfoliation [Recovering/Resolving]
  - Skin discolouration [Recovering/Resolving]
  - Face oedema [Recovering/Resolving]
  - Eyelid oedema [Recovering/Resolving]

NARRATIVE: CASE EVENT DATE: 20141117
